FAERS Safety Report 9433272 (Version 1)
Quarter: 2013Q3

REPORT INFORMATION
  Report Type: Spontaneous
  Country: GB (occurrence: GB)
  Receive Date: 20130731
  Receipt Date: 20130731
  Transmission Date: 20140515
  Serious: Yes (Life-Threatening, Hospitalization, Other)
  Sender: FDA-Public Use
  Company Number: GB-GLAXOSMITHKLINE-B0911985A

PATIENT
  Age: 67 Year
  Sex: Male

DRUGS (9)
  1. OMEGA-3-ACID ETHYL ESTERS [Suspect]
     Indication: HYPERCHOLESTEROLAEMIA
     Dosage: 1000MG PER DAY
     Route: 048
     Dates: end: 20120426
  2. ALLOPURINOL [Suspect]
     Indication: GOUT
     Dosage: 300MG PER DAY
     Route: 048
     Dates: end: 20120426
  3. ASPIRIN [Suspect]
     Indication: ANTIPLATELET THERAPY
     Dosage: 75MG PER DAY
     Route: 048
     Dates: end: 20120426
  4. ATORVASTATIN [Suspect]
     Indication: HYPERCHOLESTEROLAEMIA
     Dosage: 80MG PER DAY
     Route: 048
     Dates: end: 20120425
  5. CLOPIDOGREL [Suspect]
     Indication: ANTIPLATELET THERAPY
     Dosage: 75MG PER DAY
     Route: 048
     Dates: end: 20120426
  6. EZETIMIBE [Suspect]
     Indication: HYPERCHOLESTEROLAEMIA
     Dosage: 10MG PER DAY
     Route: 048
     Dates: end: 20120426
  7. PERINDOPRIL [Suspect]
     Indication: HYPERTENSION
     Dosage: 8MG PER DAY
     Route: 048
     Dates: end: 20120426
  8. RITONAVIR [Suspect]
     Indication: HIV INFECTION
     Dosage: 100MG PER DAY
     Route: 048
     Dates: end: 20120426
  9. TRUVADA [Suspect]
     Indication: HIV INFECTION
     Route: 048
     Dates: start: 201103, end: 20120426

REACTIONS (2)
  - Thrombocytopenia [Not Recovered/Not Resolved]
  - Off label use [Recovered/Resolved]
